FAERS Safety Report 5736727-9 (Version None)
Quarter: 2008Q2

REPORT INFORMATION
  Report Type: 
  Country: None (occurrence: None)
  Receive Date: 20080513
  Receipt Date: 20080505
  Transmission Date: 20081010
  Serious: Yes (Death, Hospitalization, Other)
  Sender: FDA-Public Use
  Company Number: PHEH2008US01428

PATIENT
  Age: 68 Year
  Sex: Male
  Weight: 88.435 kg

DRUGS (8)
  1. TASIGNA [Suspect]
     Indication: CHRONIC MYELOID LEUKAEMIA
     Dosage: 400 MG, BID
     Route: 048
     Dates: start: 20080118, end: 20080201
  2. TASIGNA [Suspect]
     Dosage: 400 MG, QD
     Route: 048
     Dates: start: 20080201, end: 20080201
  3. HYDREA [Concomitant]
  4. GABAPENTIN [Concomitant]
  5. LOPRESSOR [Concomitant]
  6. MAXZIDE [Concomitant]
  7. CALCITRIOL [Concomitant]
  8. FLOMAX [Concomitant]

REACTIONS (24)
  - ABASIA [None]
  - AORTIC VALVE INCOMPETENCE [None]
  - ASTHENIA [None]
  - ATRIAL FIBRILLATION [None]
  - BLAST CRISIS IN MYELOGENOUS LEUKAEMIA [None]
  - BLOOD CREATININE INCREASED [None]
  - BLOOD UREA INCREASED [None]
  - BRADYCARDIA [None]
  - DIZZINESS [None]
  - DYSPNOEA [None]
  - EJECTION FRACTION ABNORMAL [None]
  - ELECTROCARDIOGRAM QT PROLONGED [None]
  - ELECTROCARDIOGRAM ST-T CHANGE [None]
  - FATIGUE [None]
  - MALIGNANT NEOPLASM PROGRESSION [None]
  - MITRAL VALVE INCOMPETENCE [None]
  - PALLOR [None]
  - PROTHROMBIN LEVEL INCREASED [None]
  - PULMONARY CONGESTION [None]
  - PULMONARY VALVE INCOMPETENCE [None]
  - PULMONARY VASCULAR DISORDER [None]
  - RENAL FAILURE [None]
  - RIGHT ATRIAL DILATATION [None]
  - WHITE BLOOD CELL COUNT DECREASED [None]
